FAERS Safety Report 8951616 (Version 8)
Quarter: 2014Q2

REPORT INFORMATION
  Report Type: Report from Study
  Country: FR (occurrence: FR)
  Receive Date: 20121204
  Receipt Date: 20140522
  Transmission Date: 20141212
  Serious: Yes (Hospitalization)
  Sender: FDA-Public Use
  Company Number: FR-ROCHE-1160163

PATIENT
  Age: 55 Year
  Sex: Male
  Weight: 86 kg

DRUGS (23)
  1. BLINDED PICTILISIB [Suspect]
     Indication: NON-SMALL CELL LUNG CANCER
     Dosage: LAST DOSES PRIOR TO SAES: 03 AND 21/NOV/2012?MOST RECENT DOSE PRIOR TO SAE (FEBRILE APLASIA): 26/OCT
     Route: 048
     Dates: start: 20121026
  2. BEVACIZUMAB [Suspect]
     Indication: NON-SMALL CELL LUNG CANCER
     Dosage: LAST DOSES PRIOR TO SAES: 1300MG ON 26/OCT/2012 AND 20/NOV/2012
     Route: 042
     Dates: start: 20121026
  3. PACLITAXEL [Suspect]
     Indication: NON-SMALL CELL LUNG CANCER
     Dosage: LAST DOSE PRIOR TO SAES: 150MG ON 26/OCT/2012 AND 150MG ON 20/NOV/2012
     Route: 042
     Dates: start: 20121026
  4. CARBOPLATIN [Suspect]
     Indication: NON-SMALL CELL LUNG CANCER
     Dosage: LAST DOSE PRIOR TO SAE: 810MG ON 26/OCT/2012 AND 810MG ON 20/NOV/2012
     Route: 042
     Dates: start: 20121026
  5. DEXERYL (GLYCEROL/WHITE SOFT PARAFFIN/LIQUID PARAFFIN) [Concomitant]
     Indication: RASH
     Route: 058
     Dates: start: 20121115, end: 20130120
  6. OXYCONTIN [Concomitant]
     Indication: CHEST PAIN
     Route: 048
     Dates: start: 20121019
  7. OXYNORM [Concomitant]
     Indication: CHEST PAIN
     Route: 048
     Dates: start: 20121019, end: 20130403
  8. FORLAX [Concomitant]
     Indication: CONSTIPATION
     Dosage: 2 UNITS
     Route: 048
     Dates: start: 20120919, end: 20130206
  9. ROCEPHINE [Concomitant]
     Indication: FEBRILE NEUTROPENIA
     Route: 042
     Dates: start: 20121102, end: 20121103
  10. SOLUPRED (FRANCE) [Concomitant]
     Indication: PREMEDICATION
     Route: 048
     Dates: start: 20121102, end: 20121105
  11. OMEPRAZOLE [Concomitant]
     Indication: GASTROINTESTINAL TOXICITY
     Route: 048
     Dates: start: 20121102, end: 20130109
  12. PRIMPERAN [Concomitant]
     Indication: GASTROINTESTINAL TOXICITY
     Route: 048
     Dates: start: 201210
  13. PRIMPERAN [Concomitant]
     Indication: NAUSEA
     Route: 048
     Dates: start: 201306
  14. ZOPHREN [Concomitant]
     Indication: NAUSEA
     Route: 048
     Dates: start: 201210
  15. LANSOYL [Concomitant]
     Indication: CONSTIPATION
     Route: 048
     Dates: start: 201210
  16. POLARAMINE [Concomitant]
     Indication: RASH
     Route: 042
     Dates: start: 20121103, end: 20121103
  17. POLARAMINE [Concomitant]
     Route: 042
     Dates: start: 20121121, end: 20121122
  18. XYZALL [Concomitant]
     Indication: RASH
     Route: 048
     Dates: start: 20121103, end: 20121119
  19. SOLU-MEDROL [Concomitant]
     Indication: PREMEDICATION
     Route: 048
     Dates: start: 20121106
  20. ATARAX [Concomitant]
     Indication: RASH
     Route: 042
     Dates: start: 20121105
  21. ZYRTEC [Concomitant]
     Indication: ERYTHEMA
     Route: 048
     Dates: start: 20121120, end: 20130206
  22. ZYRTEC [Concomitant]
     Indication: RASH
     Route: 048
     Dates: start: 201212
  23. AUGMENTIN [Concomitant]
     Indication: SUBCUTANEOUS ABSCESS
     Route: 048
     Dates: start: 20121201, end: 20121211

REACTIONS (4)
  - Febrile bone marrow aplasia [Recovered/Resolved]
  - Rash [Recovered/Resolved]
  - Febrile neutropenia [Recovered/Resolved]
  - Rash macular [Recovered/Resolved with Sequelae]
